FAERS Safety Report 9140746 (Version 2)
Quarter: 2013Q2

REPORT INFORMATION
  Report Type: Spontaneous
  Country: US (occurrence: US)
  Receive Date: 20130305
  Receipt Date: 20130403
  Transmission Date: 20140414
  Serious: Yes (Hospitalization, Other)
  Sender: FDA-Public Use
  Company Number: US-FRI-1000042992

PATIENT
  Age: 47 Year
  Sex: Female

DRUGS (7)
  1. VIIBRYD [Suspect]
     Indication: DEPRESSION
     Dosage: 20 MG
     Route: 048
     Dates: start: 201212, end: 201212
  2. VIIBRYD [Suspect]
     Dosage: 40 MG
     Route: 048
     Dates: start: 201212, end: 201301
  3. VIIBRYD [Suspect]
     Indication: DEPRESSION
     Dosage: 20 MG
     Route: 048
     Dates: start: 201301
  4. POTASSIUM [Suspect]
     Indication: HYPOKALAEMIA
     Dosage: 80 MEQ
     Route: 048
     Dates: start: 201301, end: 201302
  5. POTASSIUM [Suspect]
     Dosage: 40 MEQ
     Route: 048
     Dates: start: 201302
  6. CYMBALTA [Concomitant]
     Indication: BACK PAIN
     Dosage: 30 MG
  7. BUPROPION [Concomitant]
     Indication: DEPRESSION
     Dosage: 200 MG

REACTIONS (7)
  - Hypokalaemia [Recovered/Resolved]
  - Loss of consciousness [Recovered/Resolved]
  - Acne [Recovered/Resolved]
  - Headache [Not Recovered/Not Resolved]
  - Dizziness [Recovering/Resolving]
  - Vomiting [Not Recovered/Not Resolved]
  - Diarrhoea [Not Recovered/Not Resolved]
